FAERS Safety Report 24581558 (Version 2)
Quarter: 2024Q4

REPORT INFORMATION
  Report Type: Spontaneous
  Country: BR (occurrence: BR)
  Receive Date: 20241105
  Receipt Date: 20241217
  Transmission Date: 20250115
  Serious: Yes (Other)
  Sender: Phathom Pharmaceuticals
  Company Number: BR-PHATHOM PHARMACEUTICALS INC.-2024PHT01196

PATIENT
  Sex: Female
  Weight: 75 kg

DRUGS (4)
  1. VONOPRAZAN FUMARATE [Suspect]
     Active Substance: VONOPRAZAN FUMARATE
     Indication: Gastric ulcer
     Dosage: UNK
     Route: 065
  2. VONOPRAZAN FUMARATE [Suspect]
     Active Substance: VONOPRAZAN FUMARATE
     Dosage: UNK
     Route: 065
  3. LUFTAGASTROPRO [Concomitant]
  4. MICARDIS [Concomitant]
     Active Substance: TELMISARTAN

REACTIONS (4)
  - Coronary artery disease [Unknown]
  - Incorrect product administration duration [Unknown]
  - Treatment failure [Unknown]
  - Product administration interrupted [Unknown]
